FAERS Safety Report 15321888 (Version 1)
Quarter: 2018Q3

REPORT INFORMATION
  Report Type: Spontaneous
  Country: US (occurrence: US)
  Receive Date: 20180821
  Receipt Date: 20180821
  Transmission Date: 20181010
  Serious: Yes (Hospitalization)
  Sender: FDA-Public Use
  Company Number: None

PATIENT
  Age: 66 Year
  Sex: Male

DRUGS (13)
  1. ASPIRIN. [Concomitant]
     Active Substance: ASPIRIN
  2. LISINOPRIL. [Concomitant]
     Active Substance: LISINOPRIL
  3. WARFARIN [Concomitant]
     Active Substance: WARFARIN
  4. FERROUS SULFATE. [Concomitant]
     Active Substance: FERROUS SULFATE
  5. NORVASC [Concomitant]
     Active Substance: AMLODIPINE BESYLATE
  6. AVODART [Concomitant]
     Active Substance: DUTASTERIDE
  7. SPIRONOLACTONE. [Concomitant]
     Active Substance: SPIRONOLACTONE
  8. MYCOPHENOLIC DR [Suspect]
     Active Substance: MYCOPHENOLIC ACID
     Indication: RENAL TRANSPLANT
     Route: 048
     Dates: start: 20170816
  9. CARVEDILOL. [Concomitant]
     Active Substance: CARVEDILOL
  10. VITAMIN D3 [Concomitant]
     Active Substance: CHOLECALCIFEROL
  11. FAMOTIDINE. [Concomitant]
     Active Substance: FAMOTIDINE
  12. ZORTRESS [Suspect]
     Active Substance: EVEROLIMUS
     Indication: RENAL TRANSPLANT
     Route: 048
     Dates: start: 20170816
  13. LASIX [Concomitant]
     Active Substance: FUROSEMIDE

REACTIONS (1)
  - Pneumonia [None]
